FAERS Safety Report 13963785 (Version 1)
Quarter: 2017Q3

REPORT INFORMATION
  Report Type: Spontaneous
  Country: US (occurrence: None)
  Receive Date: 20170913
  Receipt Date: 20170913
  Transmission Date: 20171128
  Serious: Yes (Disabling, Other)
  Sender: FDA-Public Use
  Company Number: None

PATIENT
  Age: 67 Year
  Sex: Female
  Weight: 70.76 kg

DRUGS (3)
  1. LEVOTHYROXINE. [Concomitant]
     Active Substance: LEVOTHYROXINE
  2. BETA-BLOCKER [Concomitant]
     Active Substance: UNSPECIFIED INGREDIENT
  3. ARMOUR THYROID [Suspect]
     Active Substance: THYROID, PORCINE
     Indication: HYPOTHYROIDISM
     Route: 048
     Dates: start: 20160810, end: 20170311

REACTIONS (4)
  - Heart rate irregular [None]
  - Atrial fibrillation [None]
  - Gastrointestinal pain [None]
  - Blood pressure fluctuation [None]

NARRATIVE: CASE EVENT DATE: 20160810
